FAERS Safety Report 6352353-5 (Version None)
Quarter: 2009Q3

REPORT INFORMATION
  Report Type: 
  Country: None (occurrence: None)
  Receive Date: 20090912
  Receipt Date: 20090622
  Transmission Date: 20100115
  Serious: No
  Sender: FDA-Public Use
  Company Number: US-ABBOTT-08P-163-0434529-00

PATIENT
  Sex: Female
  Weight: 52.21 kg

DRUGS (5)
  1. HUMIRA [Suspect]
     Indication: CROHN'S DISEASE
     Route: 058
     Dates: start: 20080118, end: 20080118
  2. HUMIRA [Suspect]
     Route: 058
     Dates: start: 20080104, end: 20080104
  3. MESALAZINE [Concomitant]
     Indication: CROHN'S DISEASE
  4. MERCAPTOPURINE [Concomitant]
     Indication: CROHN'S DISEASE
  5. LEVOTHYROXINE SODIUM [Concomitant]
     Indication: HYPOTHYROIDISM

REACTIONS (1)
  - INCORRECT DOSE ADMINISTERED [None]
